FAERS Safety Report 7449753-9 (Version None)
Quarter: 2011Q2

REPORT INFORMATION
  Report Type: 
  Country: None (occurrence: None)
  Receive Date: 20110421
  Receipt Date: 20110413
  Transmission Date: 20111010
  Serious: Yes (Death, Hospitalization)
  Sender: FDA-Public Use
  Company Number: UTC-006163

PATIENT
  Age: 75 Year
  Sex: Female
  Weight: 62 kg

DRUGS (6)
  1. VIAGRA [Suspect]
  2. TYVASO [Suspect]
     Indication: SCLERODERMA
     Dosage: 54 MCG, INHALATION
     Route: 055
     Dates: start: 20110321
  3. TYVASO [Suspect]
     Indication: COR PULMONALE CHRONIC
     Dosage: 54 MCG, INHALATION
     Route: 055
     Dates: start: 20110321
  4. DIURETICS (DIURETICS) [Concomitant]
  5. REVATIO [Concomitant]
  6. COUMADIN [Concomitant]

REACTIONS (2)
  - MALAISE [None]
  - PNEUMONIA [None]
